FAERS Safety Report 4697356-1 (Version None)
Quarter: 2005Q2

REPORT INFORMATION
  Report Type: 
  Country: None (occurrence: None)
  Receive Date: 20050621
  Receipt Date: 20050603
  Transmission Date: 20051028
  Serious: Yes (Other)
  Sender: FDA-Public Use
  Company Number: USA050394019

PATIENT
  Age: 43 Year
  Sex: Female
  Weight: 61 kg

DRUGS (6)
  1. HUMATROPE [Suspect]
     Indication: HYPOPITUITARISM
     Dosage: 0.3 MG DAY
     Dates: start: 20050222
  2. TRILEPTAL [Concomitant]
  3. KLONOPIN [Concomitant]
  4. HYDROCODONE [Concomitant]
  5. THYROXIN (LEVOTHYROXINE SODIUM) [Concomitant]
  6. ESTRADIOL [Concomitant]

REACTIONS (7)
  - BLOOD SODIUM DECREASED [None]
  - CONVULSION [None]
  - HEADACHE [None]
  - INCORRECT DOSE ADMINISTERED [None]
  - INJECTION SITE HAEMORRHAGE [None]
  - INJECTION SITE IRRITATION [None]
  - PHARMACEUTICAL PRODUCT COMPLAINT [None]
